FAERS Safety Report 7883255-0 (Version None)
Quarter: 2011Q4

REPORT INFORMATION
  Report Type: 
  Country: None (occurrence: None)
  Receive Date: 20111031
  Receipt Date: 20111017
  Transmission Date: 20120403
  Serious: Yes (Death)
  Sender: FDA-Public Use
  Company Number: UTC-011372

PATIENT
  Age: 74 Year
  Sex: Female
  Weight: 79.8 kg

DRUGS (6)
  1. COUMADIN [Concomitant]
  2. REVATIO [Concomitant]
  3. TRACLEER [Concomitant]
  4. TYVASO [Suspect]
     Indication: COR PULMONALE
     Dosage: 72 MCG (18 MCG, 4 IN 1 D), INHALATION 3-9 BREATHS (18 TO 54 MCG), INHALATION
     Route: 055
     Dates: start: 20110927
  5. TYVASO [Suspect]
     Indication: COR PULMONALE
     Dosage: 72 MCG (18 MCG, 4 IN 1 D), INHALATION 3-9 BREATHS (18 TO 54 MCG), INHALATION
     Route: 055
     Dates: start: 20110927
  6. DIURETICS (DIURETICS) [Concomitant]

REACTIONS (1)
  - DEATH [None]
